FAERS Safety Report 6698679-7 (Version None)
Quarter: 2010Q2

REPORT INFORMATION
  Report Type: 
  Country: None (occurrence: None)
  Receive Date: 20100427
  Receipt Date: 20090908
  Transmission Date: 20101027
  Serious: No
  Sender: FDA-Public Use
  Company Number: US-ASTRAZENECA-2009SE12060

PATIENT
  Age: 42 Year
  Sex: Female

DRUGS (10)
  1. ZOMIG [Suspect]
     Indication: MIGRAINE
     Route: 048
     Dates: start: 19990101
  2. SEROQUEL [Suspect]
     Indication: SLEEP DISORDER
     Route: 048
  3. FENTANYL [Concomitant]
  4. PROVIGIL [Concomitant]
  5. ABILIFY [Concomitant]
  6. SYNTHROID [Concomitant]
  7. MORPHINE [Concomitant]
  8. IBUPROFEN [Concomitant]
  9. PHENERGAN [Concomitant]
  10. ZONEGRAN [Concomitant]

REACTIONS (3)
  - CHEST DISCOMFORT [None]
  - FEELING COLD [None]
  - HYPERHIDROSIS [None]
